FAERS Safety Report 12582713 (Version 1)
Quarter: 2016Q3

REPORT INFORMATION
  Report Type: Spontaneous
  Country: US (occurrence: US)
  Receive Date: 20160722
  Receipt Date: 20160722
  Transmission Date: 20161109
  Serious: Yes (Other)
  Sender: FDA-Public Use
  Company Number: PHEH2016US018176

PATIENT
  Age: 77 Year
  Sex: Female

DRUGS (1)
  1. TYKERB [Suspect]
     Active Substance: LAPATINIB DITOSYLATE
     Indication: BREAST CANCER
     Dosage: 1250 MG, QD
     Route: 048
     Dates: start: 20160531, end: 20160714

REACTIONS (2)
  - Malignant neoplasm progression [Unknown]
  - Breast cancer [Unknown]

NARRATIVE: CASE EVENT DATE: 20160714
